FAERS Safety Report 6702062-5 (Version None)
Quarter: 2010Q2

REPORT INFORMATION
  Report Type: 
  Country: None (occurrence: None)
  Receive Date: 20100427
  Receipt Date: 20100412
  Transmission Date: 20101027
  Serious: Yes (Hospitalization, Other)
  Sender: FDA-Public Use
  Company Number: JPI-P-010327

PATIENT
  Age: 60 Year
  Sex: Male
  Weight: 78.0187 kg

DRUGS (7)
  1. XYREM [Suspect]
     Indication: NARCOLEPSY
     Dosage: 4.5 GM (2.25 GM, 2 IN 1 D), ORAL; 6 GM (3 GM,2 IN 1 D), ORAL ; 7.5 GM (3.75 GM, 2 IN 1 D), ORAL; 7.5
     Route: 048
     Dates: start: 20080105, end: 20080109
  2. XYREM [Suspect]
     Indication: NARCOLEPSY
     Dosage: 4.5 GM (2.25 GM, 2 IN 1 D), ORAL; 6 GM (3 GM,2 IN 1 D), ORAL ; 7.5 GM (3.75 GM, 2 IN 1 D), ORAL; 7.5
     Route: 048
     Dates: end: 20100404
  3. XYREM [Suspect]
     Indication: NARCOLEPSY
     Dosage: 4.5 GM (2.25 GM, 2 IN 1 D), ORAL; 6 GM (3 GM,2 IN 1 D), ORAL ; 7.5 GM (3.75 GM, 2 IN 1 D), ORAL; 7.5
     Route: 048
     Dates: start: 20080110
  4. XYREM [Suspect]
     Indication: NARCOLEPSY
     Dosage: 4.5 GM (2.25 GM, 2 IN 1 D), ORAL; 6 GM (3 GM,2 IN 1 D), ORAL ; 7.5 GM (3.75 GM, 2 IN 1 D), ORAL; 7.5
     Route: 048
     Dates: start: 20100410
  5. MODAFINIL [Concomitant]
  6. ROSUVASTATIN [Concomitant]
  7. VERAPAMIL [Concomitant]

REACTIONS (1)
  - BONE NEOPLASM MALIGNANT [None]
